FAERS Safety Report 24536192 (Version 2)
Quarter: 2024Q4

REPORT INFORMATION
  Report Type: Spontaneous
  Country: HU (occurrence: HU)
  Receive Date: 20241022
  Receipt Date: 20241120
  Transmission Date: 20250115
  Serious: Yes (Hospitalization)
  Sender: SANOFI AVENTIS
  Company Number: None

PATIENT
  Age: 22 Year
  Sex: Female

DRUGS (9)
  1. NITROGLYCERIN [Suspect]
     Active Substance: NITROGLYCERIN
     Dosage: 5 MG, QD
     Route: 062
  2. CLONAZEPAM [Suspect]
     Active Substance: CLONAZEPAM
     Indication: Seizure
     Dosage: UNK
     Route: 042
  3. ENOXAPARIN SODIUM [Suspect]
     Active Substance: ENOXAPARIN SODIUM
     Dosage: 0.6 ML
     Route: 058
  4. LEVETIRACETAM [Suspect]
     Active Substance: LEVETIRACETAM
     Indication: Seizure
     Dosage: UNK
  5. AMLODIPINE [Suspect]
     Active Substance: AMLODIPINE BESYLATE
     Indication: Hypertension
     Dosage: 5 MG, QD
     Route: 048
  6. METHYLDOPA [Suspect]
     Active Substance: METHYLDOPA
     Indication: Hypertension
     Dosage: 25 MG, TID
     Route: 048
  7. MANNITOL [Suspect]
     Active Substance: MANNITOL
     Dosage: 100 ML
     Route: 041
  8. URAPIDIL [Suspect]
     Active Substance: URAPIDIL
     Indication: Hypertension
     Dosage: 10 MG
     Route: 042
  9. OXYGEN [Suspect]
     Active Substance: OXYGEN
     Dosage: 7 L, QMN
     Route: 045

REACTIONS (1)
  - Exposure during pregnancy [Unknown]
